FAERS Safety Report 7820426-3 (Version None)
Quarter: 2011Q4

REPORT INFORMATION
  Report Type: 
  Country: None (occurrence: None)
  Receive Date: 20111018
  Receipt Date: 20111013
  Transmission Date: 20120403
  Serious: Yes (Hospitalization)
  Sender: FDA-Public Use
  Company Number: BR-ROCHE-1004333

PATIENT
  Sex: Female
  Weight: 44 kg

DRUGS (7)
  1. BONIVA [Suspect]
     Indication: BONE DECALCIFICATION
     Route: 048
  2. ENALAPRIL MALEATE [Concomitant]
  3. CITALOPRAM [Concomitant]
  4. SOMALIUM [Concomitant]
  5. CALCIUM CARBONATE [Concomitant]
  6. VYTORIN [Concomitant]
  7. ASPIRIN [Concomitant]

REACTIONS (1)
  - FEMUR FRACTURE [None]
